FAERS Safety Report 24457228 (Version 1)
Quarter: 2024Q4

REPORT INFORMATION
  Report Type: Spontaneous
  Country: US (occurrence: US)
  Receive Date: 20241018
  Receipt Date: 20241018
  Transmission Date: 20250115
  Serious: No
  Sender: AMGEN
  Company Number: US-AMGEN-USASP2024205515

PATIENT
  Age: 74 Year
  Sex: Female

DRUGS (2)
  1. MVASI [Suspect]
     Active Substance: BEVACIZUMAB-AWWB
     Indication: Product used for unknown indication
     Dosage: DOSE ORDERED: 1300 MILLIGRAM, (3) 400 MG VIAL AND (1) 100 MG VIAL
     Route: 065
     Dates: start: 20240110
  2. MVASI [Suspect]
     Active Substance: BEVACIZUMAB-AWWB
     Dosage: DOSE ORDERED: 1300 MILLIGRAM, (3) 400 MG VIAL AND (1) 100 MG VIAL
     Route: 065

REACTIONS (2)
  - Blood creatinine abnormal [Unknown]
  - Fatigue [Unknown]

NARRATIVE: CASE EVENT DATE: 20240909
